FAERS Safety Report 23392608 (Version 1)
Quarter: 2024Q1

REPORT INFORMATION
  Report Type: Spontaneous
  Country: US (occurrence: None)
  Receive Date: 20240110
  Receipt Date: 20240110
  Transmission Date: 20240410
  Serious: Yes (unspecified)
  Sender: FDA-Public Use
  Company Number: None

PATIENT
  Age: 36 Year
  Sex: Female
  Weight: 81.9 kg

DRUGS (1)
  1. PENTASA [Suspect]
     Active Substance: MESALAMINE
     Indication: Crohn^s disease
     Dates: start: 20230907, end: 20230924

REACTIONS (7)
  - Chills [None]
  - Fatigue [None]
  - Dyspnoea [None]
  - Chest pain [None]
  - Renal injury [None]
  - Platelet count decreased [None]
  - Fibrin D dimer increased [None]

NARRATIVE: CASE EVENT DATE: 20230921
